FAERS Safety Report 4438980-0 (Version None)
Quarter: 2004Q3

REPORT INFORMATION
  Report Type: 
  Country: None (occurrence: None)
  Receive Date: 20040830
  Receipt Date: 20040819
  Transmission Date: 20050211
  Serious: Yes (Hospitalization)
  Sender: FDA-Public Use
  Company Number: STA-AE-04-MTX-372

PATIENT
  Age: 64 Year
  Sex: Male

DRUGS (6)
  1. RHEUMATREX [Suspect]
     Indication: RHEUMATOID ARTHRITIS
     Dosage: 6 MG 1X PER 1 WK, ORAL
     Route: 048
     Dates: start: 20040727, end: 20040809
  2. ENALAPRIL MALEATE [Concomitant]
  3. ALLOZYM (ALLOPURINOL) [Concomitant]
  4. VOLTAREN [Concomitant]
  5. MUCOSTA (REBAMIPIDE0 [Concomitant]
  6. ATELEC (CLINIDIPINE) [Concomitant]

REACTIONS (5)
  - ABDOMINAL PAIN [None]
  - BONE MARROW DEPRESSION [None]
  - DIARRHOEA [None]
  - HAEMODIALYSIS [None]
  - URINE OUTPUT DECREASED [None]
